FAERS Safety Report 8498875 (Version 2)
Quarter: 2013Q1

REPORT INFORMATION
  Report Type: Spontaneous
  Country: US (occurrence: US)
  Receive Date: 20120409
  Receipt Date: 20130214
  Transmission Date: 20140127
  Serious: No
  Sender: FDA-Public Use
  Company Number: US-PFIZER INC-2012083904

PATIENT
  Age: 33 Year
  Sex: Female

DRUGS (9)
  1. LYRICA [Suspect]
     Dosage: 200 MG, 2X/DAY
  2. XANAX [Suspect]
     Dosage: UNK
  3. ATENOLOL [Concomitant]
     Dosage: UNK
  4. TIZANIDINE [Concomitant]
     Dosage: UNK
  5. TEGRETOL [Concomitant]
     Dosage: UNK
  6. IBUPROFEN [Concomitant]
     Dosage: UNK
  7. NORTRIPTYLINE [Concomitant]
     Dosage: UNK
  8. LORTAB [Concomitant]
     Dosage: UNK
  9. FOCALIN [Concomitant]
     Dosage: UNK

REACTIONS (2)
  - Fibromyalgia [Unknown]
  - Impaired work ability [Unknown]
